FAERS Safety Report 4450235-7 (Version None)
Quarter: 2004Q3

REPORT INFORMATION
  Report Type: 
  Country: None (occurrence: None)
  Receive Date: 20040914
  Receipt Date: 20040903
  Transmission Date: 20050211
  Serious: Yes (Other)
  Sender: FDA-Public Use
  Company Number: 2004232185DE

PATIENT
  Age: 64 Year
  Sex: Female
  Weight: 73 kg

DRUGS (2)
  1. FARMORUBICIN (EPIRUBICIN HYDROCHLORIDE) SOLUTION, STERILE [Suspect]
     Indication: BREAST CANCER FEMALE
     Dosage: 164 MG, CYCLIC, IV
     Route: 042
     Dates: start: 20040629, end: 20040629
  2. CYCLOPHOSPHAMIDE [Suspect]
     Indication: BREAST CANCER
     Dosage: 1100 MG, CYCLIC, IV
     Route: 042
     Dates: start: 20040629, end: 20040629

REACTIONS (3)
  - ANAEMIA [None]
  - PYREXIA [None]
  - UPPER RESPIRATORY TRACT INFECTION [None]
